FAERS Safety Report 5878138-1 (Version None)
Quarter: 2008Q3

REPORT INFORMATION
  Report Type: 
  Country: None (occurrence: None)
  Receive Date: 20080911
  Receipt Date: 20080901
  Transmission Date: 20090109
  Serious: Yes (Death)
  Sender: FDA-Public Use
  Company Number: NO-PURDUE-GBR_2008_0004415

PATIENT
  Age: 100 Year
  Sex: Female

DRUGS (1)
  1. MORPHINE [Suspect]
     Indication: DRUG USE FOR UNKNOWN INDICATION
     Dosage: 60 MG, DAILY
     Route: 048

REACTIONS (2)
  - COMA [None]
  - DRUG ADMINISTRATION ERROR [None]
